FAERS Safety Report 18744069 (Version 2)
Quarter: 2021Q1

REPORT INFORMATION
  Report Type: Report from Study
  Country: None (occurrence: CO)
  Receive Date: 20210115
  Receipt Date: 20210218
  Transmission Date: 20210419
  Serious: Yes (Other)
  Sender: FDA-Public Use
  Company Number: CO-ABBVIE-20K-036-3696642-00

PATIENT
  Sex: Male
  Weight: 68 kg

DRUGS (1)
  1. HUMIRA [Suspect]
     Active Substance: ADALIMUMAB
     Indication: CROHN^S DISEASE
     Route: 058
     Dates: start: 20180813

REACTIONS (11)
  - Anorectal discomfort [Not Recovered/Not Resolved]
  - Tracheal pain [Recovered/Resolved]
  - Arthralgia [Not Recovered/Not Resolved]
  - Back pain [Not Recovered/Not Resolved]
  - Fistula discharge [Not Recovered/Not Resolved]
  - Pain in extremity [Not Recovered/Not Resolved]
  - Oropharyngeal discomfort [Not Recovered/Not Resolved]
  - Unevaluable event [Unknown]
  - Trigger finger [Not Recovered/Not Resolved]
  - Aphonia [Not Recovered/Not Resolved]
  - Anal fistula [Recovering/Resolving]

NARRATIVE: CASE EVENT DATE: 2020
